FAERS Safety Report 6028018-6 (Version None)
Quarter: 2008Q4

REPORT INFORMATION
  Report Type: 
  Country: None (occurrence: None)
  Receive Date: 20081224
  Receipt Date: 20081215
  Transmission Date: 20090506
  Serious: Yes (Other)
  Sender: FDA-Public Use
  Company Number: B0547601A

PATIENT
  Age: 59 Year
  Sex: Female

DRUGS (2)
  1. PAROXETINE HCL [Suspect]
     Indication: DEPRESSION
  2. ALPRAZOLAM [Concomitant]

REACTIONS (1)
  - ANGLE CLOSURE GLAUCOMA [None]
